FAERS Safety Report 6205109-8 (Version None)
Quarter: 2009Q2

REPORT INFORMATION
  Report Type: 
  Country: None (occurrence: None)
  Receive Date: 20090527
  Receipt Date: 20090225
  Transmission Date: 20091009
  Serious: No
  Sender: FDA-Public Use
  Company Number: US-ABBOTT-09P-163-0559234-00

PATIENT
  Sex: Female

DRUGS (1)
  1. SIMCOR [Suspect]
     Indication: DRUG USE FOR UNKNOWN INDICATION
     Dosage: 500/20MG DAILY AT BEDTIME
     Dates: start: 20090220, end: 20090221

REACTIONS (6)
  - BACK PAIN [None]
  - DIARRHOEA [None]
  - NAUSEA [None]
  - NERVOUSNESS [None]
  - NONSPECIFIC REACTION [None]
  - SKIN SWELLING [None]
